FAERS Safety Report 8098388-6 (Version None)
Quarter: 2012Q1

REPORT INFORMATION
  Report Type: 
  Country: None (occurrence: None)
  Receive Date: 20120131
  Receipt Date: 20120126
  Transmission Date: 20120608
  Serious: Yes (Death)
  Sender: FDA-Public Use
  Company Number: FR-JNJFOC-20111009083

PATIENT
  Sex: Male
  Weight: 67 kg

DRUGS (3)
  1. ABIRATERONE [Suspect]
     Route: 048
  2. ABIRATERONE [Suspect]
     Indication: PROSTATE CANCER
     Route: 048
     Dates: start: 20110421, end: 20110805
  3. PREDNISONE TAB [Suspect]
     Indication: PROSTATE CANCER
     Route: 048

REACTIONS (7)
  - DRUG INEFFECTIVE [None]
  - DECREASED APPETITE [None]
  - GENERAL PHYSICAL HEALTH DETERIORATION [None]
  - ASTHENIA [None]
  - NAUSEA [None]
  - PROSTATE CANCER [None]
  - PAIN [None]
